FAERS Safety Report 8282255-9 (Version None)
Quarter: 2012Q2

REPORT INFORMATION
  Report Type: 
  Country: None (occurrence: None)
  Receive Date: 20120410
  Receipt Date: 20120330
  Transmission Date: 20120825
  Serious: Yes (Hospitalization)
  Sender: FDA-Public Use
  Company Number: ACO_29945_2012

PATIENT
  Sex: Male

DRUGS (9)
  1. AMPYRA [Suspect]
     Indication: PRODUCT USED FOR UNKNOWN INDICATION
     Dosage: 10 MG, Q 12 HRS, ORAL
     Route: 048
     Dates: start: 20110215, end: 20120329
  2. SKELAXIN /00611501/ (METAXALONE) [Concomitant]
  3. BACLOFEN [Concomitant]
  4. PERCOCET /00446701/ (OXYCODONE HYDROCHLORIDE,TEREPHTHALATE, PARACETAMO [Concomitant]
  5. VICODIN [Concomitant]
  6. AMANTADINE HCL [Concomitant]
  7. TYSABRI [Concomitant]
  8. LEXAPRO [Concomitant]
  9. CELEBREX [Concomitant]

REACTIONS (2)
  - INSOMNIA [None]
  - PAIN [None]
